FAERS Safety Report 8210976-2 (Version None)
Quarter: 2012Q1

REPORT INFORMATION
  Report Type: 
  Country: None (occurrence: None)
  Receive Date: 20120229
  Receipt Date: 20110429
  Transmission Date: 20120608
  Serious: Yes (Other)
  Sender: FDA-Public Use
  Company Number: 033317

PATIENT
  Age: 72 Year
  Sex: Female

DRUGS (1)
  1. TUSSIONEX [Suspect]
     Dosage: (ONE TEASPOON EVERY 12 HOURS PRN)

REACTIONS (2)
  - SINUS DISORDER [None]
  - HEADACHE [None]
